FAERS Safety Report 7283031-6 (Version None)
Quarter: 2011Q1

REPORT INFORMATION
  Report Type: 
  Country: None (occurrence: None)
  Receive Date: 20110204
  Receipt Date: 20110204
  Transmission Date: 20110831
  Serious: Yes (Other)
  Sender: FDA-Public Use
  Company Number: None

PATIENT
  Sex: Female
  Weight: 71.2147 kg

DRUGS (1)
  1. AMLODIPINE [Suspect]

REACTIONS (4)
  - SWELLING FACE [None]
  - PRODUCT SUBSTITUTION ISSUE [None]
  - PHARYNGEAL OEDEMA [None]
  - SWOLLEN TONGUE [None]
